FAERS Safety Report 15573217 (Version 1)
Quarter: 2018Q4

REPORT INFORMATION
  Report Type: Spontaneous
  Country: US (occurrence: US)
  Receive Date: 20181101
  Receipt Date: 20181101
  Transmission Date: 20190205
  Serious: No
  Sender: FDA-Public Use
  Company Number: PHEH2018US046232

PATIENT

DRUGS (2)
  1. LENVIMA [Suspect]
     Active Substance: LENVATINIB
     Indication: THYROID CANCER
     Dosage: 24 MG, QD
     Route: 048
     Dates: start: 20180710
  2. ZOLEDRONATE [Suspect]
     Active Substance: ZOLEDRONIC ACID
     Indication: BONE DECALCIFICATION
     Dosage: UNK UNK, QMO
     Route: 041

REACTIONS (2)
  - Pain in jaw [Recovered/Resolved]
  - Bone decalcification [Not Recovered/Not Resolved]
